FAERS Safety Report 10596731 (Version 2)
Quarter: 2014Q4

REPORT INFORMATION
  Report Type: Spontaneous
  Country: BR (occurrence: BR)
  Receive Date: 20141120
  Receipt Date: 20141120
  Transmission Date: 20150529
  Serious: Yes (Other)
  Sender: FDA-Public Use
  Company Number: BR-SA-2014SA011127

PATIENT
  Sex: Female
  Weight: 63 kg

DRUGS (16)
  1. AMLODIPINE [Concomitant]
     Active Substance: AMLODIPINE BESYLATE
     Indication: BLOOD PRESSURE
     Dates: start: 201312
  2. LOSARTAN [Concomitant]
     Active Substance: LOSARTAN
     Indication: BLOOD PRESSURE
     Dates: start: 201312
  3. CLIKSTAR [Concomitant]
     Active Substance: CLIKSTAR
     Indication: DEVICE THERAPY
  4. LANTUS [Suspect]
     Active Substance: INSULIN GLARGINE
     Indication: DIABETES MELLITUS
     Dosage: STRENGTH: 3 ML CARTRIDGE
     Route: 058
     Dates: start: 201311
  5. VASTAREL [Concomitant]
     Active Substance: TRIMETAZIDINE DIHYDROCHLORIDE
     Indication: CARDIAC DISORDER
     Dates: start: 201312
  6. OMEPRAZOLE. [Concomitant]
     Active Substance: OMEPRAZOLE
     Indication: GASTRIC DISORDER
     Dates: start: 201402
  7. CRESTOR [Concomitant]
     Active Substance: ROSUVASTATIN CALCIUM
     Indication: BLOOD CHOLESTEROL
     Dates: start: 201312
  8. DIAMICRON [Concomitant]
     Active Substance: GLICLAZIDE
     Indication: DIABETES MELLITUS
     Dates: start: 201402
  9. ALL OTHER THERAPEUTIC PRODUCTS [Concomitant]
     Active Substance: UNSPECIFIED INGREDIENT
     Indication: HEPATIC CIRRHOSIS
     Dates: start: 201311
  10. LEVOTHYROXINE SODIUM. [Concomitant]
     Active Substance: LEVOTHYROXINE SODIUM
     Indication: THYROID DISORDER
     Dates: start: 201307
  11. MOTILIUM [Concomitant]
     Active Substance: DOMPERIDONE
     Indication: HEPATIC CIRRHOSIS
     Dates: start: 201311
  12. GABAPENTIN. [Concomitant]
     Active Substance: GABAPENTIN
     Indication: DIABETIC NEUROPATHY
     Dates: start: 201403
  13. BROMAZEPAM [Concomitant]
     Active Substance: BROMAZEPAM
     Indication: INSOMNIA
     Dates: start: 201312
  14. CONCOR [Concomitant]
     Active Substance: BISOPROLOL FUMARATE
     Indication: CARDIAC DISORDER
     Dates: start: 201403
  15. SUSTRATE [Concomitant]
     Active Substance: PROPATYL NITRATE
     Indication: BLOOD PRESSURE
     Dates: start: 201312
  16. NOVORAPID [Concomitant]
     Active Substance: INSULIN ASPART

REACTIONS (19)
  - Dizziness [Recovered/Resolved]
  - Swelling [Recovered/Resolved]
  - Dyspnoea [Recovered/Resolved]
  - Injection site haematoma [Recovered/Resolved]
  - Balance disorder [Recovered/Resolved]
  - Weight increased [Not Recovered/Not Resolved]
  - Asthenopia [Recovered/Resolved]
  - Erythema [Recovered/Resolved]
  - Malnutrition [Unknown]
  - Hypoglycaemia [Recovered/Resolved]
  - Injection site pain [Recovered/Resolved]
  - Glycosylated haemoglobin increased [Unknown]
  - Injection site haemorrhage [Recovered/Resolved]
  - Hypersensitivity [Recovered/Resolved]
  - Pancreatic disorder [Unknown]
  - Malaise [Recovered/Resolved]
  - Tremor [Recovered/Resolved]
  - Disorientation [Recovered/Resolved]
  - Pain [Recovering/Resolving]

NARRATIVE: CASE EVENT DATE: 2014
